FAERS Safety Report 9381242 (Version 1)
Quarter: 2013Q3

REPORT INFORMATION
  Report Type: Spontaneous
  Country: US (occurrence: US)
  Receive Date: 20130703
  Receipt Date: 20130703
  Transmission Date: 20140515
  Serious: No
  Sender: FDA-Public Use
  Company Number: US-PFIZER INC-2013194405

PATIENT
  Age: 79 Year
  Sex: Female
  Weight: 72.56 kg

DRUGS (4)
  1. CELEBREX [Suspect]
     Indication: ARTHRITIS
     Dosage: 200 MG, 1X/DAY
     Dates: start: 20130625, end: 20130626
  2. TYLENOL [Suspect]
     Indication: ARTHRITIS
     Dosage: 500 MG 2 TABLETS, 2X/DAY
     Dates: start: 201306, end: 201306
  3. BUFFERIN [Suspect]
     Indication: ARTHRITIS
     Dosage: 250 MG, AS NEEDED
     Dates: start: 2012, end: 201306
  4. METOPROLOL [Concomitant]
     Indication: BLOOD PRESSURE ABNORMAL
     Dosage: UNK

REACTIONS (2)
  - Urticaria [Unknown]
  - Drug ineffective [Unknown]
